FAERS Safety Report 6821331-1 (Version None)
Quarter: 2010Q3

REPORT INFORMATION
  Report Type: 
  Country: None (occurrence: None)
  Receive Date: 20100707
  Receipt Date: 20080703
  Transmission Date: 20110219
  Serious: No
  Sender: FDA-Public Use
  Company Number: US-PFIZER INC-2008056208

PATIENT
  Sex: Female
  Weight: 68.04 kg

DRUGS (3)
  1. ZOLOFT [Suspect]
     Indication: POSTPARTUM DEPRESSION
     Dates: start: 20060101
  2. ZOLOFT [Suspect]
     Indication: POST-TRAUMATIC STRESS DISORDER
  3. ZYRTEC [Concomitant]

REACTIONS (6)
  - DISTURBANCE IN ATTENTION [None]
  - DRUG DOSE OMISSION [None]
  - HEAD DISCOMFORT [None]
  - HEADACHE [None]
  - NAUSEA [None]
  - WITHDRAWAL SYNDROME [None]
